FAERS Safety Report 4552758-9 (Version None)
Quarter: 2005Q1

REPORT INFORMATION
  Report Type: 
  Country: None (occurrence: None)
  Receive Date: 20050114
  Receipt Date: 20050106
  Transmission Date: 20050727
  Serious: Yes (Hospitalization)
  Sender: FDA-Public Use
  Company Number: US-JNJFOC-20050101536

PATIENT
  Sex: Female
  Weight: 43 kg

DRUGS (6)
  1. DURAGESIC [Suspect]
     Route: 062
  2. SYNTHROID [Concomitant]
     Indication: HYPOTHYROIDISM
  3. AMIODARONE [Concomitant]
     Indication: ARRHYTHMIA
  4. COUMADIN [Concomitant]
     Indication: ANTICOAGULANT THERAPY
  5. CORDARONE [Concomitant]
  6. BOTOX [Concomitant]
     Indication: MUSCLE SPASTICITY

REACTIONS (7)
  - ASTHENIA [None]
  - CYANOSIS [None]
  - HYPOXIA [None]
  - MUSCULAR WEAKNESS [None]
  - OFF LABEL USE [None]
  - PULMONARY OEDEMA [None]
  - SEDATION [None]
